FAERS Safety Report 7831058-5 (Version None)
Quarter: 2011Q4

REPORT INFORMATION
  Report Type: 
  Country: None (occurrence: None)
  Receive Date: 20111021
  Receipt Date: 20111012
  Transmission Date: 20120403
  Serious: Yes (Other)
  Sender: FDA-Public Use
  Company Number: PHHY2011DE90257

PATIENT
  Sex: Female

DRUGS (3)
  1. CLOZAPINE [Suspect]
     Dosage: {350 MG/D
     Route: 048
     Dates: end: 20111001
  2. CLOZAPINE [Suspect]
     Dosage: 350 MG / DAY
     Route: 048
  3. SEROQUEL [Concomitant]

REACTIONS (8)
  - SOMNOLENCE [None]
  - AUTOIMMUNE DISORDER [None]
  - WHITE BLOOD CELL COUNT INCREASED [None]
  - ANTIPSYCHOTIC DRUG LEVEL INCREASED [None]
  - INFECTION [None]
  - PYREXIA [None]
  - DELIRIUM [None]
  - SOPOR [None]
